FAERS Safety Report 24698026 (Version 4)
Quarter: 2025Q1

REPORT INFORMATION
  Report Type: Spontaneous
  Country: US (occurrence: US)
  Receive Date: 20241204
  Receipt Date: 20250213
  Transmission Date: 20250408
  Serious: Yes (Other)
  Sender: SANOFI AVENTIS
  Company Number: US-SA-2024SA355582

PATIENT
  Age: 53 Year
  Sex: Female

DRUGS (2)
  1. DUPIXENT [Suspect]
     Active Substance: DUPILUMAB
     Indication: Dermatitis atopic
     Dosage: 300 MG, QOW
     Route: 058
     Dates: start: 202404
  2. EPIPEN [GABAPENTIN] [Concomitant]

REACTIONS (13)
  - Anaphylactic reaction [Unknown]
  - Loss of consciousness [Unknown]
  - Hypotension [Unknown]
  - Vomiting [Unknown]
  - Erythema [Unknown]
  - Milk allergy [Unknown]
  - Mental status changes [Unknown]
  - Peripheral swelling [Unknown]
  - General physical condition abnormal [Unknown]
  - Pain in extremity [Unknown]
  - Dermatitis atopic [Unknown]
  - Conjunctivitis [Unknown]
  - Hypersensitivity [Unknown]

NARRATIVE: CASE EVENT DATE: 20240101
